FAERS Safety Report 4659061-7 (Version None)
Quarter: 2005Q2

REPORT INFORMATION
  Report Type: 
  Country: None (occurrence: None)
  Receive Date: 20050509
  Receipt Date: 20050429
  Transmission Date: 20051028
  Serious: Yes (Hospitalization)
  Sender: FDA-Public Use
  Company Number: 2005-04-2150

PATIENT
  Age: 78 Year
  Sex: Male
  Weight: 68 kg

DRUGS (5)
  1. POLARAMINE [Suspect]
  2. AERIUS            (DESLORATADINE) [Suspect]
  3. SOLUPRED [Suspect]
  4. FLOUROURACIL INJECTABLE SOLUTION [Suspect]
     Indication: METASTATIC NEOPLASM
     Dosage: 3610 MG INTRAVENOUS
     Route: 042
     Dates: start: 20030225, end: 20050208
  5. LEUCOVORIN INJECTABLE [Suspect]
     Indication: METASTATIC NEOPLASM
     Dates: start: 20030225, end: 20050208

REACTIONS (8)
  - COLON CANCER [None]
  - DIARRHOEA [None]
  - DRUG INTOLERANCE [None]
  - ELECTROMYOGRAM ABNORMAL [None]
  - ICHTHYOSIS [None]
  - MALIGNANT NEOPLASM PROGRESSION [None]
  - NEUROPATHY [None]
  - RASH [None]
